FAERS Safety Report 14210544 (Version 1)
Quarter: 2017Q4

REPORT INFORMATION
  Report Type: Report from Study
  Country: US (occurrence: US)
  Receive Date: 20171121
  Receipt Date: 20171121
  Transmission Date: 20180321
  Serious: Yes (Death, Hospitalization)
  Sender: FDA-Public Use
  Company Number: US-MYLANLABS-2017M1073482

PATIENT
  Age: 65 Year
  Sex: Female

DRUGS (1)
  1. QUININE [Suspect]
     Active Substance: QUININE
     Indication: MUSCLE SPASMS
     Route: 048

REACTIONS (5)
  - Cardiovascular disorder [Fatal]
  - End stage renal disease [Unknown]
  - Thrombotic microangiopathy [Fatal]
  - Cerebrovascular accident [Fatal]
  - Acute kidney injury [Unknown]
